FAERS Safety Report 8816918 (Version 1)
Quarter: 2012Q4

REPORT INFORMATION
  Report Type: Spontaneous
  Country: US (occurrence: None)
  Receive Date: 20121002
  Receipt Date: 20121002
  Transmission Date: 20130627
  Serious: Yes (Hospitalization, Disabling, Other)
  Sender: FDA-Public Use
  Company Number: None

PATIENT
  Age: 67 Year
  Sex: Female
  Weight: 67.13 kg

DRUGS (5)
  1. METOPROLOL [Suspect]
     Indication: ATRIAL FIBRILLATION
     Dosage: 25 mg. bid po
     Route: 048
     Dates: start: 20120919, end: 20120927
  2. VERAPAMIL ER [Concomitant]
  3. LOVASTATIN [Concomitant]
  4. LOSARTAN [Concomitant]
  5. PRADAXA [Concomitant]

REACTIONS (5)
  - Dry mouth [None]
  - Thirst [None]
  - Eye pain [None]
  - Keratorhexis [None]
  - Dry eye [None]
